FAERS Safety Report 16649038 (Version 2)
Quarter: 2019Q3

REPORT INFORMATION
  Report Type: Report from Study
  Country: CA (occurrence: CA)
  Receive Date: 20190730
  Receipt Date: 20190913
  Transmission Date: 20191004
  Serious: Yes (Other)
  Sender: FDA-Public Use
  Company Number: CA-TEVA-2019-CA-1084146

PATIENT
  Sex: Female

DRUGS (3)
  1. PACLITAXEL. [Suspect]
     Active Substance: PACLITAXEL
     Indication: CERVIX CARCINOMA
     Dosage: 155 MG/M2 GIVEN AS A 3-HOUR INFUSION; PACLITAXEL WAS GIVEN ON DAY 1 AND REPEATED EVERY 21 DAYS.
     Route: 050
  2. BEVACIZUMAB. [Suspect]
     Active Substance: BEVACIZUMAB
     Indication: CERVIX CARCINOMA
     Dosage: BEVACIZUMAB WAS ADDED TO TREATMENT AFTER CYCLE 6 OF CARBOPLATIN AND PACLITAXEL AND BEVACIZUMAB WAS
     Route: 065
  3. CARBOPLATIN. [Suspect]
     Active Substance: CARBOPLATIN
     Indication: CERVIX CARCINOMA
     Dosage: CARBOPLATIN WAS GIVEN ON DAY 1 AND REPEATED EVERY 21 DAYS.
     Route: 042

REACTIONS (4)
  - Flatulence [Unknown]
  - Deep vein thrombosis [Unknown]
  - Gastrointestinal fistula [Unknown]
  - Tumour fistulisation [Unknown]
